FAERS Safety Report 4512959-2 (Version None)
Quarter: 2004Q4

REPORT INFORMATION
  Report Type: 
  Country: None (occurrence: None)
  Receive Date: 20041124
  Receipt Date: 20041124
  Transmission Date: 20050328
  Serious: Yes (Life-Threatening, Hospitalization)
  Sender: FDA-Public Use
  Company Number: None

PATIENT
  Age: 41 Year
  Sex: Female

DRUGS (2)
  1. PHENYTOIN 300 MG SR [Suspect]
     Indication: CONVULSION
     Dosage: 300 MG PO 1 D
     Route: 048
     Dates: start: 20041011, end: 20041030
  2. AZITHROMYCIN [Suspect]
     Indication: PNEUMONIA
     Dosage: AZITHROMYCIN 250 MG QD
     Dates: start: 20041025, end: 20041030

REACTIONS (3)
  - ANGIONEUROTIC OEDEMA [None]
  - DRUG HYPERSENSITIVITY [None]
  - PNEUMONIA [None]
